FAERS Safety Report 20778622 (Version 1)
Quarter: 2022Q2

REPORT INFORMATION
  Report Type: Spontaneous
  Country: US (occurrence: US)
  Receive Date: 20220503
  Receipt Date: 20220503
  Transmission Date: 20220720
  Serious: No
  Sender: FDA-Public Use
  Company Number: US-PFIZER INC-202100999804

PATIENT
  Age: 69 Year
  Sex: Female
  Weight: 68.95 kg

DRUGS (3)
  1. LYRICA [Suspect]
     Active Substance: PREGABALIN
     Dosage: 150 MG
  2. MORPHINE [Concomitant]
     Active Substance: MORPHINE
     Indication: Neuropathy peripheral
     Dosage: UNK, 2X/DAY (10-15 TWICE A DAY MORNING AND NIGHT)
  3. LORTAB [Concomitant]
     Active Substance: ACETAMINOPHEN\HYDROCODONE BITARTRATE
     Indication: Neuropathy peripheral
     Dosage: 3.25 MG, 2X/DAY (MORNING AND NIGHT)

REACTIONS (1)
  - Drug ineffective [Unknown]
